FAERS Safety Report 16184889 (Version 1)
Quarter: 2019Q2

REPORT INFORMATION
  Report Type: Spontaneous
  Country: TR (occurrence: TR)
  Receive Date: 20190411
  Receipt Date: 20190411
  Transmission Date: 20190711
  Serious: Yes (Hospitalization)
  Sender: FDA-Public Use
  Company Number: TR-NOVAST LABORATORIES, LTD-TR-2019NOV000233

PATIENT
  Age: 10 Year
  Sex: Male

DRUGS (3)
  1. SUCRALFATE. [Suspect]
     Active Substance: SUCRALFATE
     Indication: MYOCARDITIS POST INFECTION
     Dosage: UNK
     Route: 065
  2. BENZATHINE BENZYLPENICILLIN [Suspect]
     Active Substance: PENICILLIN G BENZATHINE
     Indication: MYOCARDITIS POST INFECTION
     Dosage: UNK
     Route: 065
  3. CARISOPRODOL\ASPIRIN [Suspect]
     Active Substance: ASPIRIN\CARISOPRODOL
     Indication: MYOCARDITIS POST INFECTION
     Dosage: 100 MG/KG/DAY (4 TIMES A DAY, EVERY 6 HOURS)
     Route: 048

REACTIONS (2)
  - Hepatotoxicity [Unknown]
  - Hepatic enzyme increased [Unknown]
